FAERS Safety Report 8758386 (Version 3)
Quarter: 2012Q4

REPORT INFORMATION
  Report Type: Spontaneous
  Country: PL (occurrence: None)
  Receive Date: 20120816
  Receipt Date: 20120920
  Transmission Date: 20130627
  Serious: Yes (Hospitalization)
  Sender: FDA-Public Use
  Company Number: 2012CP000096

PATIENT
  Age: 41 Year
  Sex: Male

DRUGS (15)
  1. PERFALGAN [Suspect]
     Route: 042
  2. KETOPROFEN [Suspect]
  3. PRITORPLUS [Suspect]
     Route: 048
     Dates: start: 2006
  4. RAMIPRIL (RAMIPRIL) [Suspect]
     Route: 048
     Dates: start: 2006
  5. ALCOHOL (ETHANOL) [Suspect]
  6. OMEPRAZOLE [Concomitant]
  7. KALDYUM [Concomitant]
  8. GLUCOSE [Concomitant]
  9. SODIUM CHLORIDE [Concomitant]
  10. POTASSIUM CHLORIDE [Concomitant]
  11. SODIUM PHOSPHATE [Concomitant]
  12. EUTHYROX [Concomitant]
  13. ORNITHINE [Concomitant]
  14. MANGESUIM + PYRIDOXINE [Concomitant]
  15. LOPERAMIDE HYDROCHLORIDE [Concomitant]

REACTIONS (24)
  - Gastroenteritis [None]
  - Liver injury [None]
  - Pancreatic disorder [None]
  - Renal injury [None]
  - Diarrhoea [None]
  - Vision blurred [None]
  - Hypoaesthesia [None]
  - Abdominal pain [None]
  - Nausea [None]
  - Dehydration [None]
  - Hypokalaemia [None]
  - Blood creatinine increased [None]
  - Alanine aminotransferase increased [None]
  - Amylase increased [None]
  - Aspartate aminotransferase increased [None]
  - Blood cholinesterase decreased [None]
  - Blood lactate dehydrogenase increased [None]
  - Blood urea increased [None]
  - Glomerular filtration rate decreased [None]
  - Haematocrit decreased [None]
  - Lipase increased [None]
  - Platelet count decreased [None]
  - Red blood cell count decreased [None]
  - Haemoglobin decreased [None]
